FAERS Safety Report 4299826-7 (Version None)
Quarter: 2004Q1

REPORT INFORMATION
  Report Type: 
  Country: None (occurrence: None)
  Receive Date: 20040219
  Receipt Date: 20040210
  Transmission Date: 20041129
  Serious: Yes (Hospitalization)
  Sender: FDA-Public Use
  Company Number: WAES 0402DEU00066

PATIENT
  Age: 62 Year
  Sex: Female
  Weight: 63 kg

DRUGS (4)
  1. HYZAAR [Concomitant]
     Route: 048
  2. METOPROLOL SUCCINATE [Concomitant]
     Indication: HYPERTENSION
     Route: 048
  3. VIOXX [Suspect]
     Indication: LOCALISED OSTEOARTHRITIS
     Route: 048
     Dates: start: 20030616
  4. VIOXX [Suspect]
     Indication: PAIN
     Route: 048
     Dates: start: 20030616

REACTIONS (3)
  - DRUG TOXICITY [None]
  - HEPATOCELLULAR DAMAGE [None]
  - HERPES SIMPLEX [None]
